FAERS Safety Report 8505497-3 (Version None)
Quarter: 2012Q2

REPORT INFORMATION
  Report Type: 
  Country: None (occurrence: None)
  Receive Date: 20120405
  Receipt Date: 20091002
  Transmission Date: 20120825
  Serious: Yes (Other)
  Sender: FDA-Public Use
  Company Number: PHEH2009US12936

PATIENT

DRUGS (1)
  1. RECLAST [Suspect]

REACTIONS (1)
  - OSTEONECROSIS [None]
